FAERS Safety Report 7056078-2 (Version None)
Quarter: 2010Q4

REPORT INFORMATION
  Report Type: 
  Country: None (occurrence: None)
  Receive Date: 20101021
  Receipt Date: 20101013
  Transmission Date: 20110411
  Serious: Yes (Other)
  Sender: FDA-Public Use
  Company Number: US-AMGEN LTD.-USASP2010000198

PATIENT

DRUGS (2)
  1. NPLATE [Suspect]
     Indication: IDIOPATHIC THROMBOCYTOPENIC PURPURA
     Dates: start: 20090918, end: 20091120
  2. CORTICOSTEROIDS [Concomitant]

REACTIONS (2)
  - CEREBRAL INFARCTION [None]
  - EVANS SYNDROME [None]
